FAERS Safety Report 20394517 (Version 3)
Quarter: 2022Q3

REPORT INFORMATION
  Report Type: Report from Study
  Country: BE (occurrence: BE)
  Receive Date: 20220129
  Receipt Date: 20220927
  Transmission Date: 20221027
  Serious: Yes (Other)
  Sender: FDA-Public Use
  Company Number: BE-NOVARTISPH-NVSC2022BE016006

PATIENT
  Sex: Male

DRUGS (2)
  1. ASCIMINIB [Suspect]
     Active Substance: ASCIMINIB
     Indication: Product used for unknown indication
     Dosage: 40 MG, BID
     Route: 065
  2. ASCIMINIB [Suspect]
     Active Substance: ASCIMINIB
     Dosage: 40 MG, QD
     Route: 065

REACTIONS (10)
  - Neurotoxicity [Unknown]
  - Dystonia [Unknown]
  - Pharyngeal dyskinesia [Unknown]
  - Neurological decompensation [Not Recovered/Not Resolved]
  - Dysphagia [Unknown]
  - Blepharospasm [Unknown]
  - Axillary pain [Unknown]
  - Haemoglobin decreased [Unknown]
  - Arthralgia [Unknown]
  - Pain [Unknown]
